FAERS Safety Report 9113558 (Version 1)
Quarter: 2013Q1

REPORT INFORMATION
  Report Type: Spontaneous
  Country: US (occurrence: US)
  Receive Date: 20130129
  Receipt Date: 20130129
  Transmission Date: 20140127
  Serious: No
  Sender: FDA-Public Use
  Company Number: US-ABBOTT-12P-163-0937231-00

PATIENT
  Sex: Male

DRUGS (5)
  1. HUMIRA 40 MG/0.8 ML PEN [Suspect]
     Indication: PSORIASIS
     Route: 058
     Dates: start: 201004
  2. CRESTOR [Concomitant]
     Indication: BLOOD CHOLESTEROL
  3. LOVAZA [Concomitant]
     Indication: BLOOD CHOLESTEROL
  4. METOPROLOL [Concomitant]
     Indication: HYPERTENSION
  5. PANTOPRAZOLE [Concomitant]
     Indication: HYPERTENSION

REACTIONS (1)
  - Hepatic enzyme increased [Unknown]
